FAERS Safety Report 9205129 (Version 1)
Quarter: 2013Q2

REPORT INFORMATION
  Report Type: Spontaneous
  Country: US (occurrence: None)
  Receive Date: 20130401
  Receipt Date: 20130401
  Transmission Date: 20140414
  Serious: No
  Sender: FDA-Public Use
  Company Number: None

PATIENT
  Age: 58 Year
  Sex: Female
  Weight: 133.81 kg

DRUGS (1)
  1. BUSPIRONE [Suspect]
     Indication: ANXIETY
     Route: 048
     Dates: start: 20130305, end: 20130329

REACTIONS (4)
  - Headache [None]
  - Rash [None]
  - Dry mouth [None]
  - Irritability [None]
